FAERS Safety Report 20087199 (Version 1)
Quarter: 2021Q4

REPORT INFORMATION
  Report Type: Spontaneous
  Country: US (occurrence: None)
  Receive Date: 20211118
  Receipt Date: 20211118
  Transmission Date: 20220303
  Serious: Yes (Other)
  Sender: FDA-Public Use
  Company Number: None

PATIENT
  Age: 63 Year
  Sex: Male
  Weight: 68.95 kg

DRUGS (1)
  1. CARBIDOPA AND LEVODOPA [Suspect]
     Active Substance: CARBIDOPA\LEVODOPA
     Indication: Parkinson^s disease
     Dosage: OTHER QUANTITY : 25MG-100MG;?OTHER FREQUENCY : 4 X DAILY;?
     Route: 048
     Dates: start: 20171214, end: 20211118

REACTIONS (2)
  - Nausea [None]
  - Abdominal discomfort [None]

NARRATIVE: CASE EVENT DATE: 20201214
